FAERS Safety Report 5086841-9 (Version None)
Quarter: 2006Q3

REPORT INFORMATION
  Report Type: 
  Country: None (occurrence: None)
  Receive Date: 20060818
  Receipt Date: 20060809
  Transmission Date: 20061208
  Serious: Yes (Other)
  Sender: FDA-Public Use
  Company Number: 2006-08-0736

PATIENT
  Age: 67 Year
  Sex: Female
  Weight: 60.782 kg

DRUGS (6)
  1. PEG-INTRON [Suspect]
     Indication: HEPATITIS C
     Dosage: SUBCUTANEOUS
     Route: 058
     Dates: start: 20060619
  2. RIBAVIRIN [Suspect]
     Indication: HEPATITIS C
     Dosage: ORAL
     Route: 048
     Dates: start: 20060619
  3. EFFEXOR [Concomitant]
  4. ESTRATEST [Concomitant]
  5. PROVERA [Concomitant]
  6. XANAX [Concomitant]

REACTIONS (13)
  - ABDOMINAL DISTENSION [None]
  - ANXIETY [None]
  - ASTHENIA [None]
  - CHEST PAIN [None]
  - DEHYDRATION [None]
  - FLUID INTAKE REDUCED [None]
  - HYPOAESTHESIA ORAL [None]
  - HYPOTENSION [None]
  - NAUSEA [None]
  - ORAL INTAKE REDUCED [None]
  - PARANOIA [None]
  - RESTLESSNESS [None]
  - WEIGHT DECREASED [None]
